FAERS Safety Report 8257503-1 (Version None)
Quarter: 2012Q2

REPORT INFORMATION
  Report Type: 
  Country: None (occurrence: None)
  Receive Date: 20120403
  Receipt Date: 20120321
  Transmission Date: 20120825
  Serious: Yes (Other)
  Sender: FDA-Public Use
  Company Number: US-BAXTER-2012BAX000293

PATIENT

DRUGS (1)
  1. BREVIBLOC DOUBLE STRENGTH [Suspect]
     Route: 042

REACTIONS (2)
  - EXTRAVASATION [None]
  - NECROSIS [None]
